FAERS Safety Report 16048326 (Version 1)
Quarter: 2019Q1

REPORT INFORMATION
  Report Type: Report from Study
  Country: ES (occurrence: ES)
  Receive Date: 20190307
  Receipt Date: 20190307
  Transmission Date: 20190418
  Serious: Yes (Hospitalization)
  Sender: FDA-Public Use
  Company Number: ES-TEVA-2019-ES-1020473

PATIENT
  Age: 2 Year
  Sex: Male

DRUGS (2)
  1. CICLOSPORINA (406A) [Suspect]
     Active Substance: CYCLOSPORINE
     Indication: PROPHYLAXIS AGAINST TRANSPLANT REJECTION
     Route: 048
     Dates: start: 20170913
  2. ESTILSONA 7 MG/ML GOTAS ORALES EN SUSPENSI?N, 1 FRASCO DE 10 ML [Interacting]
     Active Substance: PREDNISOLONE STEAGLATE
     Indication: PROPHYLAXIS AGAINST TRANSPLANT REJECTION
     Route: 048
     Dates: start: 20171026

REACTIONS (4)
  - Cytomegalovirus infection [Recovered/Resolved]
  - Device related infection [Recovered/Resolved]
  - Drug interaction [Unknown]
  - Stem cell transplant [None]

NARRATIVE: CASE EVENT DATE: 20171031
